FAERS Safety Report 18892730 (Version 1)
Quarter: 2021Q1

REPORT INFORMATION
  Report Type: Spontaneous
  Country: US (occurrence: US)
  Receive Date: 20210215
  Receipt Date: 20210215
  Transmission Date: 20210420
  Serious: Yes (Other)
  Sender: FDA-Public Use
  Company Number: NVSC2021US024350

PATIENT

DRUGS (1)
  1. TAFINLAR COMBO [Suspect]
     Active Substance: DABRAFENIB\TRAMETINIB
     Indication: PRODUCT USED FOR UNKNOWN INDICATION
     Dosage: UNK
     Route: 048

REACTIONS (4)
  - Rash [Unknown]
  - Cytopenia [Unknown]
  - Fatigue [Unknown]
  - Pyrexia [Unknown]
